FAERS Safety Report 23953913 (Version 1)
Quarter: 2024Q2

REPORT INFORMATION
  Report Type: Spontaneous
  Country: US (occurrence: US)
  Receive Date: 20240609
  Receipt Date: 20240609
  Transmission Date: 20240716
  Serious: Yes (Death, Other)
  Sender: FDA-Public Use
  Company Number: US-AMGEN-USASP2024110306

PATIENT

DRUGS (2)
  1. PREDNISONE [Suspect]
     Active Substance: PREDNISONE
     Indication: Bronchiolitis obliterans syndrome
     Dosage: UNK UNK, QD (MEDIAN DOSE: 20 MG/D).
     Route: 065
  2. RUXOLITINIB [Concomitant]
     Active Substance: RUXOLITINIB
     Indication: Bronchiolitis obliterans syndrome
     Dosage: 10 MILLIGRAM, BID, CONTINUOUSLY IN 28-D CYCLES, FOR UP TO 12 CYCLES
     Route: 065

REACTIONS (9)
  - Death [Fatal]
  - Pneumonia [Unknown]
  - Bronchiolitis obliterans syndrome [Unknown]
  - Graft versus host disease [Unknown]
  - Neutropenia [Unknown]
  - Upper respiratory tract infection [Unknown]
  - Adverse event [Unknown]
  - Anaemia [Unknown]
  - Hypertension [Unknown]
